FAERS Safety Report 7991186-0 (Version None)
Quarter: 2011Q4

REPORT INFORMATION
  Report Type: 
  Country: None (occurrence: None)
  Receive Date: 20111219
  Receipt Date: 20111209
  Transmission Date: 20120403
  Serious: Yes (Hospitalization)
  Sender: FDA-Public Use
  Company Number: US-GLAXOSMITHKLINE-A0874920A

PATIENT
  Age: 76 Year
  Sex: Male
  Weight: 116.9 kg

DRUGS (13)
  1. GLUCOTROL XL [Concomitant]
  2. COLCHICINE [Concomitant]
  3. DIOVAN [Concomitant]
  4. DARVOCET [Concomitant]
  5. INSULIN [Concomitant]
  6. LASIX [Concomitant]
  7. TOPROL-XL [Concomitant]
  8. ZOCOR [Concomitant]
  9. AVANDIA [Suspect]
     Indication: DIABETES MELLITUS
     Dosage: 8MG PER DAY
     Route: 048
     Dates: start: 20030101, end: 20061001
  10. ALLOPURINOL [Concomitant]
  11. MAGNESIUM HYDROXIDE TAB [Concomitant]
  12. NORVASC [Concomitant]
  13. VICODIN [Concomitant]

REACTIONS (4)
  - ANGINA UNSTABLE [None]
  - ANGIOPLASTY [None]
  - STENT PLACEMENT [None]
  - MYOCARDIAL INFARCTION [None]
